FAERS Safety Report 11417684 (Version 2)
Quarter: 2015Q3

REPORT INFORMATION
  Report Type: Spontaneous
  Country: JP (occurrence: JP)
  Receive Date: 20150825
  Receipt Date: 20150903
  Transmission Date: 20151125
  Serious: Yes (Other)
  Sender: FDA-Public Use
  Company Number: JP-GILEAD-2015-0168089

PATIENT
  Sex: Female

DRUGS (2)
  1. HEPSERA [Suspect]
     Active Substance: ADEFOVIR DIPIVOXIL
     Indication: HEPATITIS B
     Dosage: UNK
     Route: 048
     Dates: start: 20060726, end: 20141208
  2. ZEFIX [Suspect]
     Active Substance: LAMIVUDINE
     Indication: HEPATITIS B
     Dosage: UNK
     Route: 048
     Dates: start: 20060726, end: 20141208

REACTIONS (4)
  - Fracture [Not Recovered/Not Resolved]
  - Osteoporosis [Recovering/Resolving]
  - Fanconi syndrome acquired [Recovering/Resolving]
  - Renal impairment [Recovering/Resolving]
